FAERS Safety Report 19867618 (Version 2)
Quarter: 2021Q4

REPORT INFORMATION
  Report Type: Spontaneous
  Country: US (occurrence: US)
  Receive Date: 20210921
  Receipt Date: 20211008
  Transmission Date: 20220303
  Serious: No
  Sender: FDA-Public Use
  Company Number: US-BAUSCH-BL-2021-029403

PATIENT
  Age: 75 Year
  Sex: Female
  Weight: 63.11 kg

DRUGS (2)
  1. OPCON-A [Suspect]
     Active Substance: NAPHAZOLINE HYDROCHLORIDE\PHENIRAMINE MALEATE
     Indication: Dry eye
     Dosage: 1 DROP IN EACH EYE 4 TIMES A DAY
     Route: 047
     Dates: start: 202107, end: 20210826
  2. OPCON-A [Suspect]
     Active Substance: NAPHAZOLINE HYDROCHLORIDE\PHENIRAMINE MALEATE
     Indication: Ocular hyperaemia

REACTIONS (4)
  - Acne [Not Recovered/Not Resolved]
  - Instillation site pain [Recovered/Resolved]
  - Dry eye [Unknown]
  - Instillation site erythema [Unknown]

NARRATIVE: CASE EVENT DATE: 20210101
